FAERS Safety Report 9123056 (Version 1)
Quarter: 2013Q1

REPORT INFORMATION
  Report Type: Spontaneous
  Country: US (occurrence: US)
  Receive Date: 20130115
  Receipt Date: 20130115
  Transmission Date: 20140127
  Serious: Yes (Hospitalization, Disabling)
  Sender: FDA-Public Use
  Company Number: US-MERCK-1301USA004180

PATIENT
  Sex: Male

DRUGS (4)
  1. SINGULAIR [Suspect]
     Indication: RHINITIS
     Dosage: ONE UNIT PER DAY
     Route: 048
  2. XYZAL [Suspect]
     Dosage: 1 UNIT PER DAY
     Route: 048
  3. LAUROMACROGOL 400 [Suspect]
     Route: 042
  4. SERETIDE [Suspect]
     Dosage: 250 MICROGRAM, BID
     Route: 055

REACTIONS (6)
  - Peripheral sensory neuropathy [Unknown]
  - Pain [Unknown]
  - Purpura [Unknown]
  - Transaminases increased [Unknown]
  - Pyrexia [Unknown]
  - Paraesthesia [Unknown]
